FAERS Safety Report 5597942-0 (Version None)
Quarter: 2008Q1

REPORT INFORMATION
  Report Type: 
  Country: None (occurrence: None)
  Receive Date: 20080116
  Receipt Date: 20080108
  Transmission Date: 20080703
  Serious: Yes (Hospitalization)
  Sender: FDA-Public Use
  Company Number: CHPA2008CA00517

PATIENT
  Age: 46 Year
  Sex: Female

DRUGS (1)
  1. TRIAMINIC SRT [Suspect]
     Indication: NASOPHARYNGITIS

REACTIONS (2)
  - LOSS OF CONSCIOUSNESS [None]
  - PALPITATIONS [None]
